FAERS Safety Report 7511079-2 (Version None)
Quarter: 2011Q2

REPORT INFORMATION
  Report Type: 
  Country: None (occurrence: None)
  Receive Date: 20110531
  Receipt Date: 20110516
  Transmission Date: 20111010
  Serious: No
  Sender: FDA-Public Use
  Company Number: KR-JNJFOC-20110507629

PATIENT
  Age: 72 Year
  Sex: Male

DRUGS (2)
  1. DURAGESIC-100 [Suspect]
     Indication: PAIN MANAGEMENT
     Dosage: HALF PATCH
     Route: 062
     Dates: start: 20101201
  2. DURAGESIC-100 [Suspect]
     Route: 062

REACTIONS (5)
  - INCORRECT DRUG ADMINISTRATION DURATION [None]
  - DRUG ADMINISTRATION ERROR [None]
  - MALAISE [None]
  - PAIN [None]
  - DRUG PRESCRIBING ERROR [None]
